FAERS Safety Report 15789043 (Version 7)
Quarter: 2019Q3

REPORT INFORMATION
  Report Type: Spontaneous
  Country: US (occurrence: US)
  Receive Date: 20190104
  Receipt Date: 20190814
  Transmission Date: 20191004
  Serious: Yes (Other)
  Sender: FDA-Public Use
  Company Number: US-PFIZER INC-2019003615

PATIENT
  Age: 68 Year
  Sex: Female
  Weight: 68 kg

DRUGS (10)
  1. CRANBERRY. [Concomitant]
     Active Substance: CRANBERRY
     Indication: URINARY TRACT INFECTION
     Dosage: 1 DF, UNK
     Dates: start: 2014
  2. GABAPENTIN. [Suspect]
     Active Substance: GABAPENTIN
     Indication: PAIN
     Dosage: 100 MG, 2X/DAY
     Dates: start: 20190520
  3. GABAPENTIN. [Suspect]
     Active Substance: GABAPENTIN
     Indication: PAIN OF SKIN
     Dosage: 100 MG, AS NEEDED (BUT WHEN THE PAIN GETS SEVERE, SHE TAKES TWO CAPSULES THREE TIMES A DAY)
     Dates: start: 201812
  4. PRILOSEC [Concomitant]
     Active Substance: OMEPRAZOLE MAGNESIUM
     Indication: HYPERCHLORHYDRIA
     Dosage: 1 DF, 1X/DAY (AT NIGHT  )
     Dates: start: 2019
  5. PRILOSEC [Concomitant]
     Active Substance: OMEPRAZOLE MAGNESIUM
     Indication: GASTROOESOPHAGEAL REFLUX DISEASE
  6. SIMVASTATIN. [Concomitant]
     Active Substance: SIMVASTATIN
     Indication: BLOOD CHOLESTEROL ABNORMAL
     Dosage: 10 MG, 1X/DAY (AT NIGHT )
  7. IBRANCE [Concomitant]
     Active Substance: PALBOCICLIB
     Dosage: UNK, CYCLIC (3 WEEKS, 1WEEK OFF)
     Dates: start: 201808
  8. CALCIUM + VITAMIN D3 [Concomitant]
     Active Substance: CALCIUM CARBONATE\CHOLECALCIFEROL
     Indication: BONE DISORDER
     Dosage: 1 DF, 2X/DAY (1 TAB MORNING 1 TAB NIGHT  )
     Dates: start: 2018
  9. FASLODEX [Concomitant]
     Active Substance: FULVESTRANT
     Dosage: UNK (EVERY 4 WEEKS)
     Dates: start: 201808
  10. GABAPENTIN. [Suspect]
     Active Substance: GABAPENTIN
     Indication: BONE PAIN
     Dosage: 100 MG, AS NEEDED

REACTIONS (7)
  - Off label use [Not Recovered/Not Resolved]
  - Haematochezia [Unknown]
  - Hyperhidrosis [Not Recovered/Not Resolved]
  - Constipation [Unknown]
  - Hot flush [Not Recovered/Not Resolved]
  - Drug ineffective for unapproved indication [Not Recovered/Not Resolved]
  - Chills [Not Recovered/Not Resolved]
